FAERS Safety Report 9351091 (Version 3)
Quarter: 2013Q3

REPORT INFORMATION
  Report Type: Report from Study
  Country: US (occurrence: US)
  Receive Date: 20130617
  Receipt Date: 20130723
  Transmission Date: 20140515
  Serious: Yes (Hospitalization)
  Sender: FDA-Public Use
  Company Number: US-ALEXION-A201301355

PATIENT
  Age: 9 Year
  Sex: Female
  Weight: 26.5 kg

DRUGS (9)
  1. ECULIZUMAB [Suspect]
     Indication: HAEMOLYTIC URAEMIC SYNDROME
     Dosage: 600 MG, Q2W
     Route: 042
  2. AMLODIPINE [Concomitant]
     Dosage: 2.5 MG, BID
     Route: 048
  3. CALCITRIOL [Concomitant]
     Dosage: 0.5 MCG QD
     Route: 048
  4. CELLCEPT [Concomitant]
     Dosage: 250 MG, BID
     Route: 048
  5. PROGRAF [Concomitant]
     Dosage: 6.5 MG, BID
     Route: 048
  6. SYNERA [Concomitant]
     Dosage: 70 MG, UNK
     Route: 061
  7. ZANTAC [Concomitant]
     Dosage: 60 MG, BID
     Route: 048
  8. FERROUS SULFATE [Concomitant]
     Dosage: 64.5 MG, QD
     Route: 048
  9. DARBEPOETIN ALFA [Concomitant]
     Dosage: 25 MCG, Q2W
     Route: 058

REACTIONS (3)
  - Viral infection [Recovered/Resolved]
  - Upper respiratory tract infection [Recovered/Resolved]
  - Pyrexia [Recovered/Resolved]
